FAERS Safety Report 4999454-1 (Version None)
Quarter: 2006Q2

REPORT INFORMATION
  Report Type: 
  Country: None (occurrence: None)
  Receive Date: 20060511
  Receipt Date: 20060504
  Transmission Date: 20061013
  Serious: Yes (Death, Congenital Anomaly)
  Sender: FDA-Public Use
  Company Number: PHNU2006DE01844

PATIENT

DRUGS (1)
  1. GLEEVEC [Suspect]
     Route: 064

REACTIONS (9)
  - ASCITES [None]
  - ATRIAL SEPTAL DEFECT [None]
  - CEREBELLAR HYPOPLASIA [None]
  - HYDROCEPHALUS [None]
  - MUSCLE SPASTICITY [None]
  - PERICARDIAL EFFUSION [None]
  - SKIN OEDEMA [None]
  - TRANSPOSITION OF THE GREAT VESSELS [None]
  - ULTRASOUND FOETAL [None]
